FAERS Safety Report 6829353-1 (Version None)
Quarter: 2010Q2

REPORT INFORMATION
  Report Type: 
  Country: None (occurrence: None)
  Receive Date: 20100629
  Receipt Date: 20100617
  Transmission Date: 20101027
  Serious: Yes (Other)
  Sender: FDA-Public Use
  Company Number: AECAN201000202

PATIENT
  Age: 68 Year
  Sex: Male

DRUGS (5)
  1. GAMUNEX [Suspect]
     Indication: MYASTHENIA GRAVIS
     Dosage: 175 GM; TOTAL; IV
     Route: 042
     Dates: start: 20100202, end: 20100208
  2. GAMUNEX [Suspect]
  3. GAMUNEX [Suspect]
  4. CORTICOSTEROIDS (CORTICOSTEROIDS) [Suspect]
     Indication: MYASTHENIA GRAVIS
     Dates: start: 20100101
  5. AZATHIOPRINE [Suspect]
     Indication: MYASTHENIA GRAVIS
     Dates: start: 20100101

REACTIONS (1)
  - HEPATITIS B [None]
